FAERS Safety Report 5289062-X (Version None)
Quarter: 2007Q1

REPORT INFORMATION
  Report Type: 
  Country: None (occurrence: None)
  Receive Date: 20070118
  Receipt Date: 20061018
  Transmission Date: 20070707
  Serious: Yes (Other)
  Sender: FDA-Public Use
  Company Number: HQWYE325019OCT06

PATIENT
  Age: 55 Year
  Sex: Male
  Weight: 97.61 kg

DRUGS (5)
  1. ADVIL PM [Suspect]
     Indication: BACK PAIN
     Dosage: 1 CAPLET DAILY AT BEDTIME, ORAL
     Route: 048
     Dates: start: 20061017, end: 20061017
  2. ADVIL PM [Suspect]
     Indication: INSOMNIA
     Dosage: 1 CAPLET DAILY AT BEDTIME, ORAL
     Route: 048
     Dates: start: 20061017, end: 20061017
  3. HUMULIN 70/30 [Concomitant]
  4. TOPROL-XL [Concomitant]
  5. DYAZIDE [Concomitant]

REACTIONS (3)
  - COLD SWEAT [None]
  - DRUG EFFECT DECREASED [None]
  - VOMITING [None]
